FAERS Safety Report 24784276 (Version 1)
Quarter: 2024Q4

REPORT INFORMATION
  Report Type: Spontaneous
  Country: US (occurrence: None)
  Receive Date: 20241227
  Receipt Date: 20241227
  Transmission Date: 20250115
  Serious: Yes (Hospitalization)
  Sender: Public
  Company Number: None

PATIENT
  Age: 4 Year
  Sex: Male

DRUGS (1)
  1. VIGABATRIN [Suspect]
     Active Substance: VIGABATRIN
     Indication: Infantile spasms
     Dosage: FREQUENCY : TWICE A DAY;?
     Route: 048
     Dates: start: 20220412

REACTIONS (2)
  - Enterovirus infection [None]
  - Dyspnoea [None]

NARRATIVE: CASE EVENT DATE: 20241126
